FAERS Safety Report 13822853 (Version 1)
Quarter: 2017Q3

REPORT INFORMATION
  Report Type: Spontaneous
  Country: US (occurrence: US)
  Receive Date: 20170801
  Receipt Date: 20170801
  Transmission Date: 20171127
  Serious: Yes (Other)
  Sender: FDA-Public Use
  Company Number: US-ALLERGAN-1732192US

PATIENT
  Age: 71 Year
  Sex: Female

DRUGS (1)
  1. NORCO [Suspect]
     Active Substance: ACETAMINOPHEN\HYDROCODONE BITARTRATE
     Indication: PRODUCT USED FOR UNKNOWN INDICATION
     Route: 065

REACTIONS (35)
  - Tongue discomfort [Recovering/Resolving]
  - Stress [Unknown]
  - Headache [Unknown]
  - Femur fracture [Not Recovered/Not Resolved]
  - Eating disorder [Unknown]
  - Anxiety [Unknown]
  - Renal cancer [Unknown]
  - Jaundice [Unknown]
  - Tongue ulceration [Recovering/Resolving]
  - Hot flush [Unknown]
  - Feeling hot [Unknown]
  - Disease progression [Unknown]
  - Blood pressure fluctuation [Unknown]
  - Dysgeusia [Unknown]
  - Nausea [Not Recovered/Not Resolved]
  - Insomnia [Unknown]
  - Constipation [Unknown]
  - Chills [Unknown]
  - Vomiting [Unknown]
  - Malaise [Unknown]
  - Dyspepsia [Unknown]
  - Oral pain [Unknown]
  - Aphthous ulcer [Unknown]
  - Eructation [Unknown]
  - Withdrawal syndrome [Unknown]
  - Ageusia [Unknown]
  - Stomatitis [Unknown]
  - Pain in extremity [Not Recovered/Not Resolved]
  - Palpitations [Unknown]
  - Paraesthesia oral [Unknown]
  - Gastrooesophageal reflux disease [Unknown]
  - Abdominal discomfort [Unknown]
  - Weight decreased [Unknown]
  - Gingival pain [Unknown]
  - Blood pressure increased [Unknown]
